FAERS Safety Report 18087246 (Version 1)
Quarter: 2020Q3

REPORT INFORMATION
  Report Type: Spontaneous
  Country: US (occurrence: US)
  Receive Date: 20200729
  Receipt Date: 20200729
  Transmission Date: 20201103
  Serious: Yes (Other)
  Sender: FDA-Public Use
  Company Number: US-ASTRAZENECA-2020SE92677

PATIENT
  Age: 68 Year
  Sex: Male

DRUGS (6)
  1. ASPIRIN. [Concomitant]
     Active Substance: ASPIRIN
     Route: 065
  2. APIXABAN [Concomitant]
     Active Substance: APIXABAN
     Route: 065
  3. HEPARIN [Suspect]
     Active Substance: HEPARIN SODIUM
     Dosage: 3000.0IU UNKNOWN
     Route: 042
  4. CLOPIDOGREL [Concomitant]
     Active Substance: CLOPIDOGREL BISULFATE
     Route: 065
  5. ATORVASTATIN [Suspect]
     Active Substance: ATORVASTATIN
     Route: 065
  6. TICAGRELOR. [Suspect]
     Active Substance: TICAGRELOR
     Dosage: 180.0MG UNKNOWN
     Route: 048

REACTIONS (1)
  - Thrombocytopenia [Recovered/Resolved]
